FAERS Safety Report 9359407 (Version 2)
Quarter: 2013Q3

REPORT INFORMATION
  Report Type: Spontaneous
  Country: US (occurrence: US)
  Receive Date: 20130620
  Receipt Date: 20130806
  Transmission Date: 20140515
  Serious: Yes (Hospitalization)
  Sender: FDA-Public Use
  Company Number: US-BMSGILMSD-2013-0077002

PATIENT
  Sex: Male

DRUGS (1)
  1. ATRIPLA [Suspect]
     Indication: ACQUIRED IMMUNODEFICIENCY SYNDROME
     Dosage: 1 DF, UNK

REACTIONS (7)
  - Bronchitis [Unknown]
  - Seasonal allergy [Unknown]
  - Urticaria [Unknown]
  - Condition aggravated [Unknown]
  - Vomiting [Unknown]
  - Asthenia [Unknown]
  - Insomnia [Unknown]
